FAERS Safety Report 5787507-X (Version None)
Quarter: 2008Q2

REPORT INFORMATION
  Report Type: 
  Country: None (occurrence: None)
  Receive Date: 20080625
  Receipt Date: 20071101
  Transmission Date: 20081010
  Serious: No
  Sender: FDA-Public Use
  Company Number: US-ASTRAZENECA-2007UW25379

PATIENT
  Age: 63 Year
  Sex: Male
  Weight: 97.1 kg

DRUGS (9)
  1. PULMICORT FLEXHALER [Suspect]
     Indication: CHRONIC OBSTRUCTIVE PULMONARY DISEASE
     Route: 055
  2. ALBUTEROL [Concomitant]
  3. SPIRIVA [Concomitant]
  4. PREDNISONE [Concomitant]
  5. LASIX [Concomitant]
  6. ASPIRIN [Concomitant]
  7. XANAX [Concomitant]
  8. POTASSIUM CHLORIDE [Concomitant]
  9. CRESTOR [Concomitant]

REACTIONS (2)
  - DYSPNOEA [None]
  - MEDICATION ERROR [None]
